FAERS Safety Report 5231981-4 (Version None)
Quarter: 2007Q1

REPORT INFORMATION
  Report Type: 
  Country: None (occurrence: None)
  Receive Date: 20070202
  Receipt Date: 20070124
  Transmission Date: 20070707
  Serious: Yes (Hospitalization)
  Sender: FDA-Public Use
  Company Number: 2006SP006861

PATIENT
  Age: 9 Year
  Sex: Male
  Weight: 34.0198 kg

DRUGS (2)
  1. ASMANEX TWISTHALER [Suspect]
     Indication: DRUG USE FOR UNKNOWN INDICATION
     Dosage: 1 DF; QD; PO
     Route: 048
     Dates: start: 20061110, end: 20061114
  2. ALBUTEROL SULATE [Concomitant]

REACTIONS (1)
  - ANGIOEDEMA [None]
